FAERS Safety Report 24792798 (Version 1)
Quarter: 2024Q4

REPORT INFORMATION
  Report Type: Spontaneous
  Country: US (occurrence: US)
  Receive Date: 20241231
  Receipt Date: 20241231
  Transmission Date: 20250115
  Serious: Yes (Other)
  Sender: SANOFI AVENTIS
  Company Number: US-SA-2024SA384008

PATIENT
  Age: 23 Year
  Sex: Male

DRUGS (2)
  1. ELOCTATE [Suspect]
     Active Substance: EFMOROCTOCOG ALFA
     Dosage: 3735 U, QW
     Route: 042
  2. ELOCTATE [Suspect]
     Active Substance: EFMOROCTOCOG ALFA
     Dosage: 3735 U, QW
     Route: 042

REACTIONS (2)
  - Nephrolithiasis [Unknown]
  - Thrombosis [Unknown]

NARRATIVE: CASE EVENT DATE: 20241001
